FAERS Safety Report 19592528 (Version 1)
Quarter: 2021Q3

REPORT INFORMATION
  Report Type: Spontaneous
  Country: US (occurrence: US)
  Receive Date: 20210722
  Receipt Date: 20210722
  Transmission Date: 20211014
  Serious: Yes (Other)
  Sender: FDA-Public Use
  Company Number: US-NOVOPROD-830383

PATIENT
  Sex: Female

DRUGS (1)
  1. RYBELSUS [Suspect]
     Active Substance: SEMAGLUTIDE
     Indication: POLYCYSTIC OVARIES
     Dosage: 7 MG, QW
     Route: 048
     Dates: start: 202007, end: 202102

REACTIONS (3)
  - Off label use [Recovered/Resolved]
  - Neurotransmitter level altered [Unknown]
  - Suicidal ideation [Recovered/Resolved]

NARRATIVE: CASE EVENT DATE: 202007
